FAERS Safety Report 20672980 (Version 1)
Quarter: 2022Q2

REPORT INFORMATION
  Report Type: Spontaneous
  Country: US (occurrence: None)
  Receive Date: 20220403
  Receipt Date: 20220403
  Transmission Date: 20220721
  Serious: Yes (Hospitalization)
  Sender: FDA-Public Use
  Company Number: None

PATIENT
  Age: 59 Year
  Sex: Male

DRUGS (1)
  1. HYDROCHLOROTHIAZIDE [Suspect]
     Active Substance: HYDROCHLOROTHIAZIDE
     Indication: Hypertension
     Dosage: FREQUENCY : DAILY;?
     Route: 048
     Dates: start: 20150811, end: 20220208

REACTIONS (6)
  - Hypokalaemia [None]
  - Hypophosphataemia [None]
  - Paraneoplastic syndrome [None]
  - Hormone level abnormal [None]
  - Nervous system disorder [None]
  - Arrhythmia [None]

NARRATIVE: CASE EVENT DATE: 20220208
